FAERS Safety Report 9584806 (Version 1)
Quarter: 2013Q4

REPORT INFORMATION
  Report Type: Spontaneous
  Country: US (occurrence: US)
  Receive Date: 20131002
  Receipt Date: 20131002
  Transmission Date: 20140711
  Serious: No
  Sender: FDA-Public Use
  Company Number: US-AMGEN-USASP2013055182

PATIENT
  Age: 57 Year
  Sex: Male

DRUGS (2)
  1. ENBREL [Suspect]
     Indication: RHEUMATOID ARTHRITIS
     Dosage: 50 MG, QWK
     Route: 065
     Dates: start: 20090724
  2. HUMIRA [Suspect]
     Indication: PRODUCT USED FOR UNKNOWN INDICATION
     Dosage: Q2WK, ONE OR TWO MONTHS

REACTIONS (6)
  - Arthritis [Recovered/Resolved]
  - Local swelling [Recovered/Resolved]
  - Musculoskeletal pain [Recovered/Resolved]
  - Rotator cuff syndrome [Recovered/Resolved]
  - Rash [Recovered/Resolved]
  - Skin fissures [Recovered/Resolved]
